FAERS Safety Report 8557471-9 (Version None)
Quarter: 2012Q3

REPORT INFORMATION
  Report Type: 
  Country: None (occurrence: None)
  Receive Date: 20120801
  Receipt Date: 20120723
  Transmission Date: 20120928
  Serious: Yes (Hospitalization)
  Sender: FDA-Public Use
  Company Number: FR-ASTRAZENECA-2012SE52087

PATIENT
  Age: 59 Year
  Sex: Female

DRUGS (11)
  1. CLAVULANATE POTASSIUM [Suspect]
     Route: 042
     Dates: start: 20120523, end: 20120605
  2. NEXIUM [Suspect]
     Route: 048
     Dates: start: 20120517, end: 20120609
  3. AUGMENTIN '500' [Suspect]
     Route: 042
     Dates: start: 20120519, end: 20120523
  4. CORDARONE [Suspect]
     Route: 065
     Dates: start: 20120518, end: 20120521
  5. CRESTOR [Concomitant]
     Route: 048
  6. LOVENOX [Concomitant]
     Route: 058
  7. METRONIDAZOLE [Suspect]
     Route: 042
     Dates: start: 20120517, end: 20120519
  8. MIDAZOLAM HCL [Suspect]
     Route: 042
     Dates: start: 20120518, end: 20120525
  9. CEFTRIAXONE [Suspect]
     Route: 042
     Dates: start: 20120517, end: 20120519
  10. ACETAMINOPHEN [Concomitant]
     Route: 048
  11. CIPROFLOXACIN HYDROCHLORIDE [Concomitant]
     Dates: start: 20120523, end: 20120529

REACTIONS (1)
  - CHOLESTASIS [None]
